FAERS Safety Report 6285367-4 (Version None)
Quarter: 2009Q3

REPORT INFORMATION
  Report Type: 
  Country: None (occurrence: None)
  Receive Date: 20090723
  Receipt Date: 20090715
  Transmission Date: 20100115
  Serious: Yes (Other)
  Sender: FDA-Public Use
  Company Number: 2009AL004729

PATIENT
  Age: 33 Year
  Sex: Male

DRUGS (1)
  1. MIRTAZAPINE [Suspect]
     Indication: WEIGHT DECREASED
     Dosage: PO
     Route: 048
     Dates: end: 20081201

REACTIONS (1)
  - ATRIAL FIBRILLATION [None]
